FAERS Safety Report 4534976-9 (Version None)
Quarter: 2004Q4

REPORT INFORMATION
  Report Type: 
  Country: None (occurrence: None)
  Receive Date: 20041222
  Receipt Date: 20041008
  Transmission Date: 20050328
  Serious: No
  Sender: FDA-Public Use
  Company Number: US-BRISTOL-MYERS SQUIBB COMPANY-12728614

PATIENT

DRUGS (1)
  1. PRAVACHOL [Suspect]

REACTIONS (1)
  - HEADACHE [None]
